FAERS Safety Report 7909431-6 (Version None)
Quarter: 2011Q4

REPORT INFORMATION
  Report Type: 
  Country: None (occurrence: None)
  Receive Date: 20111111
  Receipt Date: 20111107
  Transmission Date: 20120403
  Serious: Yes (Hospitalization)
  Sender: FDA-Public Use
  Company Number: US-B.I. PHARMACEUTICALS,INC./RIDGEFIELD-2011-BP-25694BP

PATIENT
  Sex: Female

DRUGS (3)
  1. LEVOTHROID [Concomitant]
     Indication: THYROID DISORDER
     Route: 048
  2. PRADAXA [Suspect]
     Indication: ATRIAL FIBRILLATION
     Dosage: 300 MG
     Route: 048
     Dates: start: 20110401, end: 20110401
  3. PRADAXA [Suspect]
     Dosage: 300 MG
     Route: 048
     Dates: start: 20111031, end: 20111104

REACTIONS (4)
  - RENAL HAEMORRHAGE [None]
  - FREQUENT BOWEL MOVEMENTS [None]
  - HAEMORRHOIDAL HAEMORRHAGE [None]
  - DYSPNOEA [None]
